FAERS Safety Report 7401909-7 (Version None)
Quarter: 2011Q2

REPORT INFORMATION
  Report Type: 
  Country: None (occurrence: None)
  Receive Date: 20110408
  Receipt Date: 20110328
  Transmission Date: 20111010
  Serious: Yes (Hospitalization, Other)
  Sender: FDA-Public Use
  Company Number: US-JNJFOC-20110312469

PATIENT
  Sex: Female
  Weight: 51.71 kg

DRUGS (2)
  1. DURAGESIC-100 [Suspect]
     Indication: PAIN
     Route: 062
  2. DURAGESIC-100 [Suspect]
     Dosage: NDC 50458-093-05
     Route: 062

REACTIONS (2)
  - TRANSIENT ISCHAEMIC ATTACK [None]
  - CEREBROVASCULAR ACCIDENT [None]
